FAERS Safety Report 11313983 (Version 3)
Quarter: 2015Q3

REPORT INFORMATION
  Report Type: Report from Study
  Country: ES (occurrence: ES)
  Receive Date: 20150727
  Receipt Date: 20150928
  Transmission Date: 20151125
  Serious: Yes (Other)
  Sender: FDA-Public Use
  Company Number: ES-TAKEDA-2015MPI004900

PATIENT

DRUGS (6)
  1. BUSILVEX [Suspect]
     Active Substance: BUSULFAN
     Indication: PLASMA CELL MYELOMA
     Dosage: 200 MG, UNK
     Route: 042
     Dates: start: 20150304, end: 20150306
  2. REVLIMID [Suspect]
     Active Substance: LENALIDOMIDE
     Indication: PLASMA CELL MYELOMA
     Dosage: 25 MG, UNK
     Route: 048
     Dates: start: 20140624, end: 20150708
  3. DEXAMETHASONE. [Suspect]
     Active Substance: DEXAMETHASONE
     Indication: PLASMA CELL MYELOMA
     Dosage: 40 MG, UNK
     Route: 048
     Dates: start: 20140624, end: 20150708
  4. VELCADE [Suspect]
     Active Substance: BORTEZOMIB
     Indication: PLASMA CELL MYELOMA
     Dosage: 2.14 MG, UNK
     Route: 058
     Dates: start: 20140624, end: 20150708
  5. MELPHALAN [Suspect]
     Active Substance: MELPHALAN
     Indication: PLASMA CELL MYELOMA
     Dosage: 230 MG, UNK
     Route: 042
     Dates: start: 20150307, end: 20150307
  6. VALSARTAN. [Concomitant]
     Active Substance: VALSARTAN
     Indication: HYPERTENSION
     Dosage: UNK
     Route: 048

REACTIONS (1)
  - Benign neoplasm [Recovered/Resolved]

NARRATIVE: CASE EVENT DATE: 20150417
